FAERS Safety Report 14450889 (Version 2)
Quarter: 2018Q2

REPORT INFORMATION
  Report Type: Report from Study
  Country: US (occurrence: US)
  Receive Date: 20180129
  Receipt Date: 20180413
  Transmission Date: 20180711
  Serious: Yes (Other)
  Sender: FDA-Public Use
  Company Number: PHEH2018US002203

PATIENT
  Sex: Male

DRUGS (1)
  1. COSENTYX [Suspect]
     Active Substance: SECUKINUMAB
     Indication: SPINAL OSTEOARTHRITIS
     Dosage: 150 MG, QMO
     Route: 058

REACTIONS (4)
  - Product use in unapproved indication [Unknown]
  - Staphylococcal infection [Unknown]
  - Inappropriate schedule of drug administration [Unknown]
  - Immune system disorder [Unknown]
